FAERS Safety Report 4707065-8 (Version None)
Quarter: 2005Q2

REPORT INFORMATION
  Report Type: 
  Country: None (occurrence: None)
  Receive Date: 20050113
  Receipt Date: 20050113
  Transmission Date: 20051028
  Serious: Yes (Other)
  Sender: FDA-Public Use
  Company Number: None

PATIENT
  Age: 65 Year
  Sex: Female
  Weight: 54.4316 kg

DRUGS (1)
  1. DILANTIN [Suspect]
     Dosage: DILANTIN 100 MG 3/DAY

REACTIONS (1)
  - DRUG LEVEL BELOW THERAPEUTIC [None]
